FAERS Safety Report 8431127-5 (Version None)
Quarter: 2012Q2

REPORT INFORMATION
  Report Type: 
  Country: None (occurrence: None)
  Receive Date: 20120612
  Receipt Date: 20120605
  Transmission Date: 20120825
  Serious: Yes (Hospitalization, Disabling, Other)
  Sender: FDA-Public Use
  Company Number: US-MERCK-1203USA03367

PATIENT
  Age: 53 Year
  Sex: Female
  Weight: 54 kg

DRUGS (4)
  1. FOSAMAX [Suspect]
     Indication: OSTEOPENIA
     Route: 048
     Dates: start: 20020530, end: 20110201
  2. ALENDRONATE SODIUM [Suspect]
     Indication: OSTEOPENIA
     Route: 048
     Dates: start: 20090219, end: 20100303
  3. HORMONES (UNSPECIFIED) [Concomitant]
     Indication: HOT FLUSH
     Route: 065
     Dates: start: 19960101
  4. VITAMIN D (UNSPECIFIED) [Concomitant]
     Route: 065

REACTIONS (9)
  - BONE DISORDER [None]
  - HYPERTENSION [None]
  - ARTHROPATHY [None]
  - STRESS FRACTURE [None]
  - FEMUR FRACTURE [None]
  - BREAST CANCER IN SITU [None]
  - OSTEOPOROSIS [None]
  - HYPERCHOLESTEROLAEMIA [None]
  - LOW TURNOVER OSTEOPATHY [None]
